FAERS Safety Report 5876009-8 (Version None)
Quarter: 2008Q3

REPORT INFORMATION
  Report Type: 
  Country: None (occurrence: None)
  Receive Date: 20080905
  Receipt Date: 20080901
  Transmission Date: 20090109
  Serious: Yes (Other)
  Sender: FDA-Public Use
  Company Number: 2008GR_BP0326

PATIENT
  Age: 52 Year
  Sex: Male
  Weight: 87 kg

DRUGS (1)
  1. TERBINAFINE         (TERBINAFINE) [Suspect]
     Indication: ONYCHOMYCOSIS
     Dosage: 250 MG (250 MG,1 IN 1 D)   ORAL
     Route: 048
     Dates: start: 20080412, end: 20080418

REACTIONS (1)
  - PANCREATITIS [None]
